FAERS Safety Report 11935866 (Version 1)
Quarter: 2016Q1

REPORT INFORMATION
  Report Type: Spontaneous
  Country: US (occurrence: US)
  Receive Date: 20160121
  Receipt Date: 20160121
  Transmission Date: 20160526
  Serious: No
  Sender: FDA-Public Use
  Company Number: US-PFIZER INC-2016009976

PATIENT
  Age: 96 Year
  Sex: Female
  Weight: 56 kg

DRUGS (2)
  1. AMIODARONE HCL [Suspect]
     Active Substance: AMIODARONE HYDROCHLORIDE
     Dosage: UNK
  2. LEUKERAN [Suspect]
     Active Substance: CHLORAMBUCIL
     Dosage: UNK

REACTIONS (1)
  - Rash [Unknown]
